FAERS Safety Report 23160783 (Version 3)
Quarter: 2024Q2

REPORT INFORMATION
  Report Type: Report from Study
  Country: US (occurrence: US)
  Receive Date: 20231108
  Receipt Date: 20240509
  Transmission Date: 20240716
  Serious: No
  Sender: FDA-Public Use
  Company Number: US-SA-SAC20231030002721

PATIENT
  Age: 50 Year
  Sex: Female
  Weight: 58.9 kg

DRUGS (1)
  1. DUPIXENT [Suspect]
     Active Substance: DUPILUMAB
     Indication: Dermatitis atopic
     Dosage: 300 MG, QOW
     Route: 058
     Dates: start: 20210801

REACTIONS (4)
  - Dermatitis atopic [Unknown]
  - Skin swelling [Unknown]
  - Pain of skin [Unknown]
  - Product dose omission issue [Unknown]
